FAERS Safety Report 23249444 (Version 1)
Quarter: 2023Q4

REPORT INFORMATION
  Report Type: Spontaneous
  Country: US (occurrence: US)
  Receive Date: 20231201
  Receipt Date: 20231201
  Transmission Date: 20240110
  Serious: No
  Sender: FDA-Public Use
  Company Number: US-AMGEN-USASP2023213114

PATIENT
  Age: 27 Year
  Sex: Female
  Weight: 29.025 kg

DRUGS (3)
  1. ROMOSOZUMAB [Suspect]
     Active Substance: ROMOSOZUMAB
     Indication: Osteogenesis imperfecta
     Dosage: 210 MILLIGRAM, QMO
     Route: 065
  2. ROMOSOZUMAB [Suspect]
     Active Substance: ROMOSOZUMAB
     Indication: Off label use
  3. PAMIDRONATE [Concomitant]
     Active Substance: PAMIDRONATE DISODIUM
     Dosage: 1 MG/KG/CYELE Q3M

REACTIONS (1)
  - Off label use [Unknown]
